FAERS Safety Report 24542520 (Version 1)
Quarter: 2024Q4

REPORT INFORMATION
  Report Type: Spontaneous
  Country: FR (occurrence: FR)
  Receive Date: 20241024
  Receipt Date: 20241024
  Transmission Date: 20250114
  Serious: Yes (Hospitalization)
  Sender: UCB
  Company Number: None

PATIENT
  Age: 56 Year
  Sex: Male
  Weight: 59 kg

DRUGS (9)
  1. KEPPRA [Suspect]
     Active Substance: LEVETIRACETAM
     Indication: Herpes zoster meningoencephalitis
     Dosage: 3000 MILLIGRAM
     Route: 042
     Dates: start: 20240919, end: 20240919
  2. KEPPRA [Suspect]
     Active Substance: LEVETIRACETAM
     Dosage: 500 MILLIGRAM
     Route: 042
     Dates: start: 20240919, end: 20240919
  3. KEPPRA [Suspect]
     Active Substance: LEVETIRACETAM
     Dosage: 1500 MILLIGRAM, ONCE DAILY (QD)
     Route: 042
     Dates: start: 20240919, end: 20240927
  4. KEPPRA [Suspect]
     Active Substance: LEVETIRACETAM
     Dosage: 1000 MILLIGRAM, ONCE DAILY (QD)
     Route: 042
     Dates: start: 20240928
  5. ACYCLOVIR [Suspect]
     Active Substance: ACYCLOVIR
     Indication: Herpes zoster meningoencephalitis
     Dosage: 610 MILLIGRAM
     Route: 042
     Dates: start: 20240916, end: 20240916
  6. ACYCLOVIR [Suspect]
     Active Substance: ACYCLOVIR
     Dosage: 2 X 900MG
     Route: 042
     Dates: start: 20240916, end: 20240917
  7. ACYCLOVIR [Suspect]
     Active Substance: ACYCLOVIR
     Dosage: 300 MILLIGRAM, ONCE DAILY (QD)
     Route: 042
     Dates: start: 20240917
  8. ATORVASTATIN [Suspect]
     Active Substance: ATORVASTATIN
     Indication: Dilated cardiomyopathy
     Dosage: 1 COMPRIM? LE SOIR
     Route: 048
     Dates: end: 20240916
  9. ATORVASTATIN [Suspect]
     Active Substance: ATORVASTATIN
     Dosage: 10 MILLIGRAM, ONCE DAILY (QD)
     Route: 048
     Dates: start: 20240922

REACTIONS (2)
  - Cholestasis [Recovering/Resolving]
  - Jaundice [Recovering/Resolving]

NARRATIVE: CASE EVENT DATE: 20240930
